FAERS Safety Report 12597201 (Version 1)
Quarter: 2016Q3

REPORT INFORMATION
  Report Type: Spontaneous
  Country: AT (occurrence: AT)
  Receive Date: 20160726
  Receipt Date: 20160726
  Transmission Date: 20161109
  Serious: Yes (Hospitalization)
  Sender: FDA-Public Use
  Company Number: AT-ABBVIE-16K-009-1683010-00

PATIENT
  Sex: Female

DRUGS (1)
  1. DUODOPA [Suspect]
     Active Substance: CARBIDOPA\LEVODOPA
     Indication: PARKINSON^S DISEASE
     Dosage: 16 HOUR THERAPY: MD: 5 ML CR: 2.7 ML/H ED: 2 ML
     Route: 050
     Dates: start: 20140922

REACTIONS (3)
  - Device dislocation [Unknown]
  - Hospitalisation [Unknown]
  - Incorrect route of drug administration [Unknown]
